FAERS Safety Report 5054200-0 (Version None)
Quarter: 2006Q3

REPORT INFORMATION
  Report Type: 
  Country: None (occurrence: None)
  Receive Date: 20060712
  Receipt Date: 20060629
  Transmission Date: 20061208
  Serious: Yes (Other)
  Sender: FDA-Public Use
  Company Number: 2006079336

PATIENT
  Age: 43 Year
  Sex: Male

DRUGS (3)
  1. HALCION [Suspect]
     Indication: SLEEP DISORDER
     Dosage: AS NECESSARY, ORAL
     Route: 048
     Dates: start: 20040101
  2. NITRAZEPAM [Suspect]
     Dosage: ORAL
     Route: 048
  3. DEPAS (ETIZOLAM) [Suspect]
     Dosage: ORAL
     Route: 048

REACTIONS (3)
  - AGEUSIA [None]
  - DYSGEUSIA [None]
  - TONSILLITIS [None]
